FAERS Safety Report 5909844-8 (Version None)
Quarter: 2008Q4

REPORT INFORMATION
  Report Type: 
  Country: None (occurrence: None)
  Receive Date: 20081002
  Receipt Date: 20080918
  Transmission Date: 20090506
  Serious: Yes (Disabling)
  Sender: FDA-Public Use
  Company Number: 20080248

PATIENT
  Age: 54 Year
  Sex: Female

DRUGS (6)
  1. VENOFER [Suspect]
     Indication: IRON DEFICIENCY
     Dosage: 30 MG OVER 90
     Dates: start: 20080730
  2. SINGULAIR [Concomitant]
  3. OXIS(FORMOTEROL FUMARATE) [Concomitant]
  4. ALVESCO [Concomitant]
  5. ACTIVELLE [Concomitant]
  6. LISINOPRIL [Concomitant]

REACTIONS (3)
  - JOINT EFFUSION [None]
  - OEDEMA PERIPHERAL [None]
  - ORTHOSTATIC HYPOTENSION [None]
